FAERS Safety Report 11061367 (Version 1)
Quarter: 2015Q2

REPORT INFORMATION
  Report Type: Spontaneous
  Country: US (occurrence: US)
  Receive Date: 20150424
  Receipt Date: 20150424
  Transmission Date: 20150821
  Serious: No
  Sender: FDA-Public Use
  Company Number: US-PFIZER INC-2015125917

PATIENT
  Age: 31 Year
  Sex: Male
  Weight: 82 kg

DRUGS (1)
  1. VIAGRA [Suspect]
     Active Substance: SILDENAFIL CITRATE
     Indication: ERECTILE DYSFUNCTION
     Dosage: 1 DF, 1X/DAY (LOWEST DOSAGE, 1 BLUE TABLET PER DAY BY MOUTH)
     Route: 048
     Dates: start: 201502

REACTIONS (4)
  - Skin discolouration [Recovered/Resolved]
  - Skin odour abnormal [Unknown]
  - Penis disorder [Not Recovered/Not Resolved]
  - Penile vascular disorder [Not Recovered/Not Resolved]

NARRATIVE: CASE EVENT DATE: 20150302
